FAERS Safety Report 7916444-7 (Version None)
Quarter: 2011Q4

REPORT INFORMATION
  Report Type: 
  Country: None (occurrence: None)
  Receive Date: 20111116
  Receipt Date: 20111102
  Transmission Date: 20120403
  Serious: Yes (Hospitalization, Other)
  Sender: FDA-Public Use
  Company Number: US-UCBSA-010997

PATIENT
  Age: 29 Year
  Sex: Female

DRUGS (8)
  1. KEPPRA XR [Suspect]
     Indication: EPILEPSY
     Dates: end: 20100121
  2. FLINSTONE CHILDREN VITAMIN [Concomitant]
     Indication: VITAMIN SUPPLEMENTATION
     Route: 048
     Dates: start: 20100115
  3. MAGNESIUM CITRATE [Concomitant]
     Indication: EPILEPSY
     Dates: start: 20100801, end: 20100101
  4. MULTI-VITAMINS [Suspect]
     Indication: VITAMIN SUPPLEMENTATION
     Route: 048
     Dates: end: 20100101
  5. KEPPRA XR [Suspect]
     Dates: start: 20100101
  6. MAGNESIUM HYDROXIDE TAB [Concomitant]
     Indication: DYSPEPSIA
     Route: 048
     Dates: start: 20100201, end: 20100101
  7. FIORICET [Concomitant]
     Indication: HEADACHE
     Dosage: 50-235-40 MG PRN
     Route: 048
     Dates: start: 20100412, end: 20100101
  8. BENADRYL [Concomitant]
     Indication: SLEEP DISORDER
     Dates: end: 20100731

REACTIONS (11)
  - CEREBROVASCULAR ACCIDENT [None]
  - UTERINE CONTRACTIONS DURING PREGNANCY [None]
  - CAESAREAN SECTION [None]
  - UPPER RESPIRATORY TRACT INFECTION [None]
  - SUBARACHNOID HAEMORRHAGE [None]
  - ANEURYSM [None]
  - HEADACHE [None]
  - DYSPEPSIA [None]
  - GESTATIONAL DIABETES [None]
  - MALAISE [None]
  - PREGNANCY [None]
